FAERS Safety Report 7312322-5 (Version None)
Quarter: 2011Q1

REPORT INFORMATION
  Report Type: 
  Country: None (occurrence: None)
  Receive Date: 20110224
  Receipt Date: 20110223
  Transmission Date: 20110831
  Serious: Yes (Hospitalization)
  Sender: FDA-Public Use
  Company Number: D0070118A

PATIENT
  Sex: Female

DRUGS (7)
  1. DELIX [Concomitant]
     Route: 065
  2. DECORTIN [Concomitant]
     Route: 065
  3. REQUIP [Suspect]
     Dosage: 16MG PER DAY
     Route: 048
     Dates: start: 20080701, end: 20110128
  4. REQUIP [Suspect]
     Dosage: 3MG FIVE TIMES PER DAY
     Route: 048
     Dates: start: 20110128
  5. BONIVA [Concomitant]
     Route: 065
  6. CRATAEGUTT [Concomitant]
     Route: 065
  7. HCT [Concomitant]
     Route: 065

REACTIONS (13)
  - PARKINSONISM [None]
  - ASTHENIA [None]
  - FATIGUE [None]
  - NAUSEA [None]
  - FEELING ABNORMAL [None]
  - SEPSIS [None]
  - RENAL FAILURE [None]
  - TREMOR [None]
  - CHILLS [None]
  - PNEUMONIA [None]
  - COMA [None]
  - MEDICATION RESIDUE [None]
  - PRODUCT QUALITY ISSUE [None]
